FAERS Safety Report 19120051 (Version 2)
Quarter: 2021Q4

REPORT INFORMATION
  Report Type: Spontaneous
  Country: US (occurrence: US)
  Receive Date: 20210412
  Receipt Date: 20211213
  Transmission Date: 20220303
  Serious: No
  Sender: FDA-Public Use
  Company Number: US-BIOGEN-2020BI00934219

PATIENT
  Age: 48 Year
  Sex: Female

DRUGS (2)
  1. VUMERITY [Suspect]
     Active Substance: DIROXIMEL FUMARATE
     Indication: Multiple sclerosis
     Route: 065
     Dates: start: 20200227
  2. VUMERITY [Suspect]
     Active Substance: DIROXIMEL FUMARATE
     Route: 065
     Dates: start: 20191212, end: 20200124

REACTIONS (4)
  - Flushing [Not Recovered/Not Resolved]
  - Dyspepsia [Not Recovered/Not Resolved]
  - Diarrhoea [Not Recovered/Not Resolved]
  - Hot flush [Unknown]

NARRATIVE: CASE EVENT DATE: 20200901
